FAERS Safety Report 5329759-6 (Version None)
Quarter: 2007Q2

REPORT INFORMATION
  Report Type: 
  Country: None (occurrence: None)
  Receive Date: 20070521
  Receipt Date: 20070511
  Transmission Date: 20071010
  Serious: Yes (Hospitalization)
  Sender: FDA-Public Use
  Company Number: AU-AMGEN-US225210

PATIENT
  Age: 42 Year
  Sex: Female

DRUGS (6)
  1. ENBREL [Suspect]
     Indication: RHEUMATOID ARTHRITIS
     Dosage: UNKNOWN
     Route: 058
     Dates: start: 20060101, end: 20070401
  2. FOLIC ACID [Concomitant]
  3. MS CONTIN [Concomitant]
  4. PREDNISONE TAB [Concomitant]
  5. WARFARIN [Concomitant]
  6. METHOTREXATE [Concomitant]

REACTIONS (3)
  - ATONIC URINARY BLADDER [None]
  - MULTIPLE SCLEROSIS [None]
  - MUSCULAR WEAKNESS [None]
